FAERS Safety Report 17066270 (Version 2)
Quarter: 2020Q1

REPORT INFORMATION
  Report Type: Spontaneous
  Country: DE (occurrence: DE)
  Receive Date: 20191122
  Receipt Date: 20200106
  Transmission Date: 20200409
  Serious: Yes (Congenital Anomaly, Other)
  Sender: FDA-Public Use
  Company Number: DE-MYLANLABS-2019M1112524

PATIENT
  Sex: Female
  Weight: 1.17 kg

DRUGS (3)
  1. FOLIC ACID. [Concomitant]
     Active Substance: FOLIC ACID
     Indication: PROPHYLAXIS OF NEURAL TUBE DEFECT
     Dosage: 0.8 MILLIGRAM, QD
     Route: 064
     Dates: start: 20160608, end: 20161124
  2. CELESTAN                           /00008501/ [Concomitant]
     Active Substance: BETAMETHASONE
     Indication: MATERNAL THERAPY TO ENHANCE FOETAL LUNG MATURITY
     Dosage: UNK
     Route: 064
     Dates: start: 20161123, end: 20161124
  3. LEVETIRACETAM. [Suspect]
     Active Substance: LEVETIRACETAM
     Indication: EPILEPSY
     Dosage: 2 DOSAGE FORM, QD, 1000-0-1500 MG/D, 2X/DAY (BID)
     Route: 064
     Dates: start: 20160503, end: 20161124

REACTIONS (8)
  - Patent ductus arteriosus [Recovered/Resolved]
  - Atrial septal defect [Not Recovered/Not Resolved]
  - Premature baby [Unknown]
  - Foetal exposure during pregnancy [Recovered/Resolved]
  - Cerebral haemorrhage neonatal [Recovering/Resolving]
  - Foetal growth restriction [Unknown]
  - Pulmonary valve stenosis congenital [Not Recovered/Not Resolved]
  - Low birth weight baby [Unknown]

NARRATIVE: CASE EVENT DATE: 2016
